FAERS Safety Report 19116229 (Version 2)
Quarter: 2023Q1

REPORT INFORMATION
  Report Type: Report from Study
  Country: JP (occurrence: None)
  Receive Date: 20210409
  Receipt Date: 20230117
  Transmission Date: 20230418
  Serious: Yes (Other)
  Sender: FDA-Public Use
  Company Number: JP-MERCK HEALTHCARE KGAA-9230196

PATIENT
  Age: 67 Year
  Sex: Male
  Weight: 65 kg

DRUGS (6)
  1. BAVENCIO [Suspect]
     Active Substance: AVELUMAB
     Indication: Metastatic renal cell carcinoma
     Dates: start: 20200720
  2. INLYTA [Suspect]
     Active Substance: AXITINIB
     Indication: Metastatic renal cell carcinoma
     Dates: start: 20200722, end: 20200806
  3. INLYTA [Suspect]
     Active Substance: AXITINIB
     Dates: start: 20200915, end: 20201013
  4. INLYTA [Suspect]
     Active Substance: AXITINIB
     Dates: start: 20201014, end: 20210202
  5. ACETAMINOPHEN [Concomitant]
     Active Substance: ACETAMINOPHEN
     Indication: Premedication
     Route: 048
     Dates: start: 20200722
  6. DIPHENHYDRAMINE [Concomitant]
     Active Substance: DIPHENHYDRAMINE
     Indication: Premedication
     Dosage: (10 MG TABLET) X 5 TABLETS
     Route: 048
     Dates: start: 20200722

REACTIONS (4)
  - Neuropathy peripheral [Recovered/Resolved]
  - Hypothyroidism [Recovering/Resolving]
  - Hyperthyroidism [Unknown]
  - Pyrexia [Unknown]

NARRATIVE: CASE EVENT DATE: 20200731
